FAERS Safety Report 9164401 (Version 1)
Quarter: 2013Q1

REPORT INFORMATION
  Report Type: Spontaneous
  Country: US (occurrence: None)
  Receive Date: 20130313
  Receipt Date: 20130313
  Transmission Date: 20140127
  Serious: Yes (Other)
  Sender: FDA-Public Use
  Company Number: None

PATIENT
  Age: 72 Year
  Sex: Male

DRUGS (1)
  1. AMIODARONE HYDROCHLORIDE [Suspect]
     Indication: ATRIAL FLUTTER
     Dosage: 150MG 1X 040
     Dates: start: 20120401

REACTIONS (3)
  - Phlebitis [None]
  - Erythema [None]
  - Feeling hot [None]
